FAERS Safety Report 13671841 (Version 1)
Quarter: 2017Q2

REPORT INFORMATION
  Report Type: Spontaneous
  Country: AU (occurrence: AU)
  Receive Date: 20170620
  Receipt Date: 20170620
  Transmission Date: 20170830
  Serious: Yes (Hospitalization, Congenital Anomaly, Other)
  Sender: FDA-Public Use
  Company Number: AU-LANNETT COMPANY, INC.-AU-2017LAN000854

PATIENT
  Sex: Female

DRUGS (4)
  1. DIAZEPAM. [Suspect]
     Active Substance: DIAZEPAM
     Indication: PRODUCT USED FOR UNKNOWN INDICATION
     Dosage: UNK
     Route: 065
  2. PIMOZIDE. [Suspect]
     Active Substance: PIMOZIDE
     Indication: PRODUCT USED FOR UNKNOWN INDICATION
     Dosage: UNK
     Route: 065
  3. ALPRAZOLAM. [Suspect]
     Active Substance: ALPRAZOLAM
     Indication: PRODUCT USED FOR UNKNOWN INDICATION
     Dosage: UNK
     Route: 065
  4. TRANYLCYPROMINE [Suspect]
     Active Substance: TRANYLCYPROMINE
     Indication: PRODUCT USED FOR UNKNOWN INDICATION
     Dosage: UNK
     Route: 065

REACTIONS (14)
  - Dysmorphism [Not Recovered/Not Resolved]
  - Respiratory distress [Unknown]
  - Atrioventricular septal defect [Unknown]
  - Congenital central nervous system anomaly [Not Recovered/Not Resolved]
  - Abasia [Not Recovered/Not Resolved]
  - Foetal exposure during pregnancy [Unknown]
  - Feeding intolerance [Not Recovered/Not Resolved]
  - Brachydactyly [Not Recovered/Not Resolved]
  - Developmental delay [Not Recovered/Not Resolved]
  - Deafness neurosensory [Not Recovered/Not Resolved]
  - Arnold-Chiari malformation [Not Recovered/Not Resolved]
  - Abdominal distension [Recovered/Resolved]
  - Craniosynostosis [Unknown]
  - Exposure during breast feeding [Recovered/Resolved]
